FAERS Safety Report 7376304-X (Version None)
Quarter: 2011Q1

REPORT INFORMATION
  Report Type: 
  Country: None (occurrence: None)
  Receive Date: 20110325
  Receipt Date: 20110321
  Transmission Date: 20110831
  Serious: Yes (Other)
  Sender: FDA-Public Use
  Company Number: US-ABBOTT-11P-163-0713708-00

PATIENT
  Sex: Female
  Weight: 80.812 kg

DRUGS (13)
  1. OMEPRIZOLE [Concomitant]
     Indication: PRODUCT USED FOR UNKNOWN INDICATION
  2. SIMVASTATIN [Concomitant]
     Indication: PRODUCT USED FOR UNKNOWN INDICATION
     Dosage: AT HOUR OF SLEEP
  3. EFFEXOR [Concomitant]
     Indication: PRODUCT USED FOR UNKNOWN INDICATION
  4. CYCLOBENZAPRINE [Concomitant]
     Indication: PRODUCT USED FOR UNKNOWN INDICATION
     Dosage: 10MG DAILY AT HOUR OF SLEEP
  5. HUMIRA [Suspect]
     Indication: RHEUMATOID ARTHRITIS
  6. TEMALOL MALEATE [Concomitant]
     Indication: MIGRAINE
     Route: 048
  7. TEMALOL MALEATE [Concomitant]
     Indication: PROPHYLAXIS
  8. VIT D3 [Concomitant]
     Indication: PRODUCT USED FOR UNKNOWN INDICATION
  9. LOVAZA [Concomitant]
     Indication: PRODUCT USED FOR UNKNOWN INDICATION
  10. TIMOLOL MALEATE [Concomitant]
     Indication: MITRAL VALVE PROLAPSE
  11. XANAX [Concomitant]
     Indication: PRODUCT USED FOR UNKNOWN INDICATION
  12. JOINT JUICE [Concomitant]
     Indication: PRODUCT USED FOR UNKNOWN INDICATION
  13. HUMIRA [Suspect]
     Indication: SPONDYLOLISTHESIS
     Dates: start: 20100901

REACTIONS (1)
  - JOINT DISLOCATION [None]
